FAERS Safety Report 4599317-X (Version None)
Quarter: 2005Q1

REPORT INFORMATION
  Report Type: 
  Country: None (occurrence: None)
  Receive Date: 20050302
  Receipt Date: 20050216
  Transmission Date: 20050727
  Serious: Yes (Hospitalization)
  Sender: FDA-Public Use
  Company Number: 2005-BP-02521MX

PATIENT
  Age: 88 Year
  Sex: Male

DRUGS (4)
  1. SECOTEX CAPSULES 0.4MG (KA) [Suspect]
     Indication: PROSTATIC OBSTRUCTION
     Dosage: 0.4 MG (0.4 MG, 1 KA OD)
  2. AMBROXOL/CLENBUTEROL [Suspect]
     Indication: CHRONIC OBSTRUCTIVE PULMONARY DISEASE
     Dosage: PO
     Route: 048
  3. CELEBREX (CELECOXIB) (KA) [Concomitant]
  4. MICCIL (BUMETANIDE) (TA) [Concomitant]

REACTIONS (3)
  - DRUG INEFFECTIVE [None]
  - DRUG INTERACTION [None]
  - RENAL CYST [None]
